FAERS Safety Report 7617350-8 (Version None)
Quarter: 2011Q3

REPORT INFORMATION
  Report Type: 
  Country: None (occurrence: None)
  Receive Date: 20110718
  Receipt Date: 20090316
  Transmission Date: 20111222
  Serious: No
  Sender: FDA-Public Use
  Company Number: US-PFIZER INC-2009187384

PATIENT
  Sex: Male
  Weight: 102 kg

DRUGS (3)
  1. CAVERJECT [Suspect]
     Route: 058
     Dates: start: 19980101
  2. PRAVACHOL [Concomitant]
     Dosage: UNK
  3. ALLOPURINOL [Concomitant]
     Dosage: UNK

REACTIONS (1)
  - DRUG INEFFECTIVE [None]
